FAERS Safety Report 24578719 (Version 4)
Quarter: 2025Q2

REPORT INFORMATION
  Report Type: Report from Study
  Country: JP (occurrence: JP)
  Receive Date: 20241105
  Receipt Date: 20250618
  Transmission Date: 20250717
  Serious: Yes (Death, Other)
  Sender: TAKEDA
  Company Number: JP-TAKEDA-2024TJP015912

PATIENT
  Age: 31 Year
  Sex: Male
  Weight: 45.3 kg

DRUGS (14)
  1. MARIBAVIR [Suspect]
     Active Substance: MARIBAVIR
     Indication: Cytomegalovirus infection
     Dosage: 400 MILLIGRAM, BID
     Dates: start: 20240829, end: 20240919
  2. BELUMOSUDIL [Concomitant]
     Active Substance: BELUMOSUDIL
     Indication: Graft versus host disease in gastrointestinal tract
  3. PREDNISOLONE [Concomitant]
     Active Substance: PREDNISOLONE
     Indication: Graft versus host disease in gastrointestinal tract
  4. GANCICLOVIR [Concomitant]
     Active Substance: GANCICLOVIR
     Indication: Cytomegalovirus infection
  5. GANCICLOVIR [Concomitant]
     Active Substance: GANCICLOVIR
     Indication: Cytomegalovirus enterocolitis
     Dates: start: 20240712, end: 20240827
  6. REZUROCK [Concomitant]
     Active Substance: BELUMOSUDIL
  7. TEICOPLANIN [Concomitant]
     Active Substance: TEICOPLANIN
  8. MICAFUNGIN SODIUM [Concomitant]
     Active Substance: MICAFUNGIN SODIUM
  9. ATARAX [Concomitant]
     Active Substance: HYDROXYZINE HYDROCHLORIDE
  10. PRIMPERAN [Concomitant]
     Active Substance: METOCLOPRAMIDE HYDROCHLORIDE
  11. HALOPERIDOL [Concomitant]
     Active Substance: HALOPERIDOL
  12. DEXTROSE [Concomitant]
     Active Substance: DEXTROSE MONOHYDRATE
  13. DIAZEPAM [Concomitant]
     Active Substance: DIAZEPAM
  14. ACETAMINOPHEN [Concomitant]
     Active Substance: ACETAMINOPHEN

REACTIONS (4)
  - Chronic graft versus host disease [Fatal]
  - Thrombotic microangiopathy [Fatal]
  - Ileus paralytic [Fatal]
  - Pneumonia pseudomonal [Fatal]

NARRATIVE: CASE EVENT DATE: 20240916
